FAERS Safety Report 19236499 (Version 4)
Quarter: 2023Q1

REPORT INFORMATION
  Report Type: Other
  Country: CA (occurrence: CA)
  Receive Date: 20210510
  Receipt Date: 20230331
  Transmission Date: 20230417
  Serious: Yes (Other)
  Sender: FDA-Public Use
  Company Number: CA-002147023-PHHY2018CA101611

PATIENT
  Age: 57 Year
  Sex: Female
  Weight: 64 kg

DRUGS (8)
  1. XOLAIR [Suspect]
     Active Substance: OMALIZUMAB
     Indication: Chronic spontaneous urticaria
     Route: 058
     Dates: start: 20180913
  2. XOLAIR [Suspect]
     Active Substance: OMALIZUMAB
     Route: 058
  3. XOLAIR [Suspect]
     Active Substance: OMALIZUMAB
     Route: 058
     Dates: start: 20180913
  4. CETIRIZINE HYDROCHLORIDE [Suspect]
     Active Substance: CETIRIZINE HYDROCHLORIDE
     Indication: Product used for unknown indication
     Route: 065
  5. SYNTHROID [Concomitant]
     Active Substance: LEVOTHYROXINE SODIUM
     Indication: Product used for unknown indication
     Dosage: 1 DF, QD
     Route: 065
  6. CETIRIZINE HYDROCHLORIDE [Concomitant]
     Active Substance: CETIRIZINE HYDROCHLORIDE
     Indication: Urticaria
     Dosage: 1 DF, QD
     Route: 065
     Dates: start: 2010
  7. TELMISARTAN [Concomitant]
     Active Substance: TELMISARTAN
     Indication: Blood pressure increased
     Dosage: 1 DF, QD
     Route: 048
  8. BENADRYL [Concomitant]
     Active Substance: DIPHENHYDRAMINE HYDROCHLORIDE
     Indication: Urticaria
     Dosage: 1 DF, QD
     Route: 065

REACTIONS (22)
  - Atrial fibrillation [Unknown]
  - Pruritus [Not Recovered/Not Resolved]
  - Palpitations [Unknown]
  - Chest pain [Unknown]
  - Heart rate decreased [Unknown]
  - Head discomfort [Recovered/Resolved]
  - Hypertension [Unknown]
  - Vaginal infection [Unknown]
  - Malaise [Unknown]
  - Myocardial infarction [Unknown]
  - Viral infection [Not Recovered/Not Resolved]
  - Illness [Unknown]
  - Influenza [Unknown]
  - Cough [Not Recovered/Not Resolved]
  - Oropharyngeal discomfort [Unknown]
  - Headache [Unknown]
  - Chronic spontaneous urticaria [Not Recovered/Not Resolved]
  - Rash [Unknown]
  - Urticaria [Unknown]
  - Injection site pain [Unknown]
  - Hypersensitivity [Unknown]
  - Somnolence [Unknown]

NARRATIVE: CASE EVENT DATE: 20180913
